FAERS Safety Report 5604575-6 (Version None)
Quarter: 2008Q1

REPORT INFORMATION
  Report Type: 
  Country: None (occurrence: None)
  Receive Date: 20080124
  Receipt Date: 20080124
  Transmission Date: 20080703
  Serious: No
  Sender: FDA-Public Use
  Company Number: None

PATIENT
  Age: 63 Year
  Sex: Male
  Weight: 90.7194 kg

DRUGS (2)
  1. METOPROLOL TARTRATE [Suspect]
     Indication: CARDIAC OPERATION
     Dosage: 12.5MGS TWICE A DAY PO
     Route: 048
     Dates: start: 20040201, end: 20080123
  2. METOPROLOL TARTRATE [Suspect]
     Indication: POST PROCEDURAL COMPLICATION
     Dosage: 12.5MGS TWICE A DAY PO
     Route: 048
     Dates: start: 20040201, end: 20080123

REACTIONS (3)
  - ABNORMAL DREAMS [None]
  - INSOMNIA [None]
  - SLEEP DISORDER [None]
